FAERS Safety Report 24603701 (Version 1)
Quarter: 2024Q4

REPORT INFORMATION
  Report Type: Spontaneous
  Country: US (occurrence: US)
  Receive Date: 20241111
  Receipt Date: 20241111
  Transmission Date: 20250115
  Serious: No
  Sender: ASTELLAS
  Company Number: US-ASTELLAS-2024-AER-016657

PATIENT
  Age: 45 Year
  Sex: Female

DRUGS (1)
  1. TACROLIMUS [Suspect]
     Active Substance: TACROLIMUS
     Indication: Liver transplant
     Route: 065

REACTIONS (7)
  - Pruritus [Unknown]
  - Paraesthesia [Unknown]
  - Hypoaesthesia [Unknown]
  - Urticaria [Unknown]
  - Arthralgia [Unknown]
  - Swelling face [Unknown]
  - Peripheral swelling [Unknown]
